FAERS Safety Report 9441006 (Version 1)
Quarter: 2013Q3

REPORT INFORMATION
  Report Type: Spontaneous
  Country: US (occurrence: None)
  Receive Date: 20130801
  Receipt Date: 20130801
  Transmission Date: 20140515
  Serious: Yes (Other)
  Sender: FDA-Public Use
  Company Number: 001573993A

PATIENT
  Age: 40 Year
  Sex: Female

DRUGS (2)
  1. MB ANTIOXIDANT DAY CREME SPF 20 [Suspect]
     Dosage: ONCE DERMAL
     Dates: start: 20130702
  2. MB SKIN BRIGHTENING DECOLLETE+NECK TREATMENT [Suspect]
     Dosage: ONCE DERMAL
     Dates: start: 20130702

REACTIONS (4)
  - Erythema [None]
  - Pain [None]
  - Urticaria [None]
  - Dyspnoea [None]
